FAERS Safety Report 4911072-X (Version None)
Quarter: 2006Q1

REPORT INFORMATION
  Report Type: 
  Country: None (occurrence: None)
  Receive Date: 20060214
  Receipt Date: 20060202
  Transmission Date: 20060701
  Serious: Yes (Other)
  Sender: FDA-Public Use
  Company Number: ES-BRISTOL-MYERS SQUIBB COMPANY-13271192

PATIENT
  Sex: Male

DRUGS (2)
  1. ABILIFY [Suspect]
     Indication: SCHIZOPHRENIA
     Route: 048
     Dates: start: 20060123, end: 20060131
  2. ALPRAZOLAM [Concomitant]

REACTIONS (4)
  - AGITATION [None]
  - ANXIETY [None]
  - DELIRIUM [None]
  - FEAR [None]
